FAERS Safety Report 25967350 (Version 1)
Quarter: 2025Q4

REPORT INFORMATION
  Report Type: Report from Study
  Country: US (occurrence: US)
  Receive Date: 20251028
  Receipt Date: 20251028
  Transmission Date: 20260118
  Serious: Yes (Other)
  Sender: ABBVIE
  Company Number: US-ABBVIE-6518896

PATIENT
  Age: 52 Year
  Sex: Female

DRUGS (3)
  1. RINVOQ [Suspect]
     Active Substance: UPADACITINIB
     Indication: Rheumatoid arthritis
     Dosage: DISCONTINUED IN 2025?FORM STRENGTH: 15 MG
     Route: 048
     Dates: start: 202509
  2. RINVOQ [Suspect]
     Active Substance: UPADACITINIB
     Indication: Rheumatoid arthritis
     Dosage: DISCONTINUED IN 2025?FORM STRENGTH: 15 MG
     Route: 048
     Dates: start: 202506
  3. RINVOQ [Suspect]
     Active Substance: UPADACITINIB
     Indication: Rheumatoid arthritis
     Dosage: FORM STRENGTH: 15 MG
     Route: 048
     Dates: start: 2025

REACTIONS (6)
  - Surgery [Unknown]
  - Pain [Recovered/Resolved]
  - Swelling [Recovered/Resolved]
  - Arthralgia [Recovered/Resolved]
  - Abdominal pain upper [Not Recovered/Not Resolved]
  - Joint swelling [Recovered/Resolved]

NARRATIVE: CASE EVENT DATE: 20250101
